FAERS Safety Report 8272957-2 (Version None)
Quarter: 2012Q2

REPORT INFORMATION
  Report Type: 
  Country: None (occurrence: None)
  Receive Date: 20120406
  Receipt Date: 20120406
  Transmission Date: 20120825
  Serious: No
  Sender: FDA-Public Use
  Company Number: None

PATIENT
  Age: 59 Year
  Sex: Female
  Weight: 71.2147 kg

DRUGS (1)
  1. AMOXICILLIN [Suspect]
     Indication: GINGIVAL INFECTION
     Dosage: 500 MG. 1 A 8 HRS.
     Dates: start: 20120316, end: 20120325

REACTIONS (1)
  - RASH ERYTHEMATOUS [None]
